FAERS Safety Report 7554595-X (Version None)
Quarter: 2011Q2

REPORT INFORMATION
  Report Type: 
  Country: None (occurrence: None)
  Receive Date: 20110617
  Receipt Date: 20110607
  Transmission Date: 20111010
  Serious: Yes (Life-Threatening, Hospitalization)
  Sender: FDA-Public Use
  Company Number: US-ROCHE-782669

PATIENT

DRUGS (3)
  1. CISPLATIN [Suspect]
     Indication: NON-SMALL CELL LUNG CANCER
     Dosage: DOSE: 75 MG/M2 IV OVER 60 MIN ON DAY 1
     Route: 042
     Dates: start: 20100915
  2. BEVACIZUMAB [Suspect]
     Indication: NON-SMALL CELL LUNG CANCER
     Dosage: FREQUENCY:15 MG/KG IV OVER 30-90 MIN ON DAY 1Q 3 WKS, FORUP TO 1 YEAR. LAST ADMINSTRATION 13OCT 2010
     Route: 042
     Dates: start: 20100915
  3. GEMCITABINE [Suspect]
     Indication: NON-SMALL CELL LUNG CANCER
     Dosage: DOSE: 1200 MG/M2/DAY IV OVER 30 MIN ON DAYS 1 AND 8
     Route: 042
     Dates: start: 20100915

REACTIONS (3)
  - DYSPNOEA [None]
  - HYPOXIA [None]
  - PNEUMONITIS [None]
